FAERS Safety Report 23058585 (Version 1)
Quarter: 2023Q4

REPORT INFORMATION
  Report Type: Spontaneous
  Country: US (occurrence: US)
  Receive Date: 20231012
  Receipt Date: 20231012
  Transmission Date: 20240110
  Serious: Yes (Death, Hospitalization)
  Sender: FDA-Public Use
  Company Number: US-MYLANLABS-2023M1106709

PATIENT
  Age: 37 Year
  Sex: Female

DRUGS (3)
  1. COLCHICINE [Suspect]
     Active Substance: COLCHICINE
     Indication: Product used for unknown indication
     Dosage: UNK;  40 TABLETS (24MG; 0.33 MG/KG).
     Route: 048
  2. FUROSEMIDE [Suspect]
     Active Substance: FUROSEMIDE
     Indication: Pulmonary oedema
     Dosage: UNK, INFUSION
     Route: 065
  3. NITROGLYCERIN [Suspect]
     Active Substance: NITROGLYCERIN
     Indication: Pulmonary oedema
     Dosage: UNK; INFUSION
     Route: 065

REACTIONS (11)
  - Completed suicide [Fatal]
  - Intentional overdose [Fatal]
  - Toxicity to various agents [Fatal]
  - Multiple organ dysfunction syndrome [Fatal]
  - Shock [Fatal]
  - Acute respiratory distress syndrome [Fatal]
  - Pulmonary oedema [Fatal]
  - Lactic acidosis [Fatal]
  - Acute kidney injury [Fatal]
  - Drug ineffective [Fatal]
  - Off label use [Unknown]
